FAERS Safety Report 24017184 (Version 1)
Quarter: 2024Q2

REPORT INFORMATION
  Report Type: Spontaneous
  Country: HU (occurrence: None)
  Receive Date: 20240627
  Receipt Date: 20240627
  Transmission Date: 20240716
  Serious: Yes (Hospitalization, Other)
  Sender: FDA-Public Use
  Company Number: HU-ALVOTECHPMS-2024-ALVOTECHPMS-001949

PATIENT
  Age: 68 Year
  Sex: Male

DRUGS (1)
  1. ADALIMUMAB [Suspect]
     Active Substance: ADALIMUMAB\ISOPROPYL ALCOHOL
     Indication: Rheumatoid arthritis
     Dosage: 40 MG SUBCUTANEOUSLY EVERY 2 WEEKS
     Route: 058
     Dates: start: 202204

REACTIONS (3)
  - Acquired haemophilia [Recovered/Resolved]
  - Pneumonia klebsiella [Recovered/Resolved]
  - Febrile neutropenia [Recovered/Resolved]
